FAERS Safety Report 18717652 (Version 2)
Quarter: 2021Q1

REPORT INFORMATION
  Report Type: Spontaneous
  Country: ES (occurrence: ES)
  Receive Date: 20210108
  Receipt Date: 20210218
  Transmission Date: 20210419
  Serious: Yes (Other)
  Sender: FDA-Public Use
  Company Number: ES-PFIZER INC-2021009678

PATIENT
  Age: 68 Year
  Sex: Female

DRUGS (5)
  1. SIMVASTATINE [Concomitant]
     Active Substance: SIMVASTATIN
     Dosage: UNK
     Route: 048
     Dates: start: 20120217
  2. AMLODIPINE BESILATE [Suspect]
     Active Substance: AMLODIPINE BESYLATE
     Indication: HYPERTENSION
     Dosage: 10 MG, 1X/DAY
     Route: 048
     Dates: start: 20201103, end: 20201207
  3. ADIRO [Concomitant]
     Active Substance: ASPIRIN
     Dosage: 100 MG, DAILY
     Route: 048
     Dates: start: 20180803
  4. PROLIA [Concomitant]
     Active Substance: DENOSUMAB
     Dosage: 60 MG 6 TIMES PER MONTH
     Route: 058
     Dates: start: 20200224
  5. CALODIS [Concomitant]
     Dosage: 1 DF, 1X/DAY
     Route: 048
     Dates: start: 20190403

REACTIONS (3)
  - Pruritus [Recovering/Resolving]
  - Skin exfoliation [Recovering/Resolving]
  - Hand dermatitis [Recovering/Resolving]

NARRATIVE: CASE EVENT DATE: 20201130
